FAERS Safety Report 7183848-2 (Version None)
Quarter: 2010Q4

REPORT INFORMATION
  Report Type: 
  Country: None (occurrence: None)
  Receive Date: 20101222
  Receipt Date: 20101214
  Transmission Date: 20110411
  Serious: Yes (Hospitalization, Other)
  Sender: FDA-Public Use
  Company Number: FR-JNJFOC-20101108788

PATIENT
  Age: 45 Year
  Sex: Female

DRUGS (14)
  1. REMICADE [Suspect]
     Indication: SJOGREN'S SYNDROME
     Route: 042
  2. REMICADE [Suspect]
     Route: 042
  3. REMICADE [Suspect]
     Route: 042
  4. REMICADE [Suspect]
     Route: 042
  5. REMICADE [Suspect]
     Indication: RHEUMATOID ARTHRITIS
     Route: 042
  6. REMICADE [Suspect]
     Route: 042
  7. REMICADE [Suspect]
     Route: 042
  8. REMICADE [Suspect]
     Route: 042
  9. ARAVA [Concomitant]
     Indication: SJOGREN'S SYNDROME
     Route: 048
  10. ARAVA [Concomitant]
     Indication: RHEUMATOID ARTHRITIS
     Route: 048
  11. CORTANCYL [Concomitant]
     Indication: SJOGREN'S SYNDROME
     Route: 048
  12. CORTANCYL [Concomitant]
     Indication: RHEUMATOID ARTHRITIS
     Route: 048
  13. CACIT D3 [Concomitant]
  14. DAFALGAN [Concomitant]

REACTIONS (1)
  - LUPUS-LIKE SYNDROME [None]
